FAERS Safety Report 4690871-6 (Version None)
Quarter: 2005Q2

REPORT INFORMATION
  Report Type: 
  Country: None (occurrence: None)
  Receive Date: 20050614
  Receipt Date: 20050608
  Transmission Date: 20051028
  Serious: Yes (Other)
  Sender: FDA-Public Use
  Company Number: 05-05-0848

PATIENT
  Age: 54 Year
  Sex: Male
  Weight: 79 kg

DRUGS (2)
  1. CLOZAPINE [Suspect]
     Indication: SCHIZOPHRENIA
     Dosage: 625MG QHS ORAL
     Route: 048
     Dates: start: 19980801
  2. INTERFERONX-2B [Concomitant]

REACTIONS (2)
  - LEUKOPENIA [None]
  - RENAL CANCER METASTATIC [None]
